FAERS Safety Report 9574828 (Version 1)
Quarter: 2013Q4

REPORT INFORMATION
  Report Type: Spontaneous
  Country: US (occurrence: US)
  Receive Date: 20131001
  Receipt Date: 20131001
  Transmission Date: 20140711
  Serious: Yes (Other)
  Sender: FDA-Public Use
  Company Number: US-IAC JAPAN XML-USA-2013-0106773

PATIENT
  Age: 51 Year
  Sex: Female

DRUGS (5)
  1. BUTRANS [Suspect]
     Indication: NECK PAIN
     Dosage: 20 MCG/HR, WEEKLY
     Route: 062
     Dates: start: 2011
  2. BUTRANS [Suspect]
     Indication: BACK PAIN
     Dosage: 10 MCG/HR, UNK
     Route: 062
  3. LYRICA [Concomitant]
     Indication: NECK PAIN
     Dosage: 75 MG, BID
     Route: 048
     Dates: start: 201307
  4. LYRICA [Concomitant]
     Indication: BACK PAIN
  5. LORTAB                             /00607101/ [Concomitant]
     Indication: PAIN
     Dosage: 1 TABLET, QID
     Route: 048

REACTIONS (6)
  - Heart valve replacement [Unknown]
  - Coronary artery bypass [Unknown]
  - Application site burn [Not Recovered/Not Resolved]
  - Application site pruritus [Not Recovered/Not Resolved]
  - Application site erythema [Not Recovered/Not Resolved]
  - Application site vesicles [Not Recovered/Not Resolved]
